FAERS Safety Report 12867798 (Version 3)
Quarter: 2018Q1

REPORT INFORMATION
  Report Type: Spontaneous
  Country: US (occurrence: US)
  Receive Date: 20161020
  Receipt Date: 20180123
  Transmission Date: 20180508
  Serious: No
  Sender: FDA-Public Use
  Company Number: US-AMGEN-USASP2016094345

PATIENT
  Sex: Female

DRUGS (9)
  1. REPATHA [Suspect]
     Active Substance: EVOLOCUMAB
     Indication: PRODUCT USED FOR UNKNOWN INDICATION
     Dosage: UNK
     Route: 065
  2. EZETIMIBE. [Concomitant]
     Active Substance: EZETIMIBE
  3. VITAMIN E [Concomitant]
     Active Substance: .ALPHA.-TOCOPHEROL
  4. BABY ASPIRIN [Concomitant]
     Active Substance: ASPIRIN
  5. B6 [Concomitant]
     Active Substance: PYRIDOXINE HYDROCHLORIDE
  6. CARVEDILOL. [Concomitant]
     Active Substance: CARVEDILOL
  7. VITAMIN B COMPLEX [Concomitant]
     Active Substance: CYANOCOBALAMIN\DEXPANTHENOL\NIACINAMIDE\PYRIDOXINE HYDROCHLORIDE\RIBOFLAVIN 5^-PHOSPHATE SODIUM\THIAMINE HYDROCHLORIDE\VITAMIN B COMPLEX
  8. MAGNESIUM [Concomitant]
     Active Substance: MAGNESIUM
  9. COQ10 [Concomitant]
     Active Substance: UBIDECARENONE

REACTIONS (12)
  - Asthenia [Unknown]
  - Body temperature abnormal [Unknown]
  - Hyperhidrosis [Unknown]
  - Diarrhoea [Unknown]
  - Malaise [Unknown]
  - Influenza like illness [Unknown]
  - Dizziness [Unknown]
  - Low density lipoprotein decreased [Unknown]
  - Myalgia [Unknown]
  - Bowel movement irregularity [Unknown]
  - Weight increased [Unknown]
  - Back pain [Unknown]
